FAERS Safety Report 9890304 (Version 2)
Quarter: 2016Q3

REPORT INFORMATION
  Report Type: Spontaneous
  Country: CL (occurrence: CL)
  Receive Date: 20140212
  Receipt Date: 20160714
  Transmission Date: 20161109
  Serious: Yes (Life-Threatening, Hospitalization, Other)
  Sender: FDA-Public Use
  Company Number: CL-BRISTOL-MYERS SQUIBB COMPANY-20134805

PATIENT
  Age: 72 Year
  Sex: Female

DRUGS (1)
  1. METFORMIN HYDROCHLORIDE. [Suspect]
     Active Substance: METFORMIN HYDROCHLORIDE
     Indication: PRODUCT USED FOR UNKNOWN INDICATION
     Route: 065

REACTIONS (8)
  - Multiple organ dysfunction syndrome [Recovering/Resolving]
  - Portal hypertension [Recovering/Resolving]
  - Upper gastrointestinal haemorrhage [Recovering/Resolving]
  - Gastric ulcer [Recovering/Resolving]
  - Liver injury [Recovering/Resolving]
  - Lactic acidosis [Recovering/Resolving]
  - Loss of consciousness [Recovering/Resolving]
  - Varices oesophageal [Recovering/Resolving]
